FAERS Safety Report 20984721 (Version 1)
Quarter: 2022Q2

REPORT INFORMATION
  Report Type: Spontaneous
  Country: US (occurrence: None)
  Receive Date: 20220621
  Receipt Date: 20220621
  Transmission Date: 20220720
  Serious: No
  Sender: FDA-Public Use
  Company Number: US-ROCHE-2856294

PATIENT
  Sex: Female

DRUGS (3)
  1. XELODA [Suspect]
     Active Substance: CAPECITABINE
     Indication: Product used for unknown indication
     Route: 048
  2. HERCEPTIN [Suspect]
     Active Substance: TRASTUZUMAB
     Indication: Breast cancer female
     Route: 041
  3. TUKYSA [Suspect]
     Active Substance: TUCATINIB
     Indication: Breast cancer female
     Dosage: TAKE ONE PILL IN THE MORNING AND ONE PILL IN THE EVENING
     Route: 065

REACTIONS (17)
  - Dermatitis allergic [Recovered/Resolved]
  - Product dose omission in error [Unknown]
  - Nail disorder [Unknown]
  - Nail bed bleeding [Unknown]
  - Skin discolouration [Unknown]
  - Dry skin [Unknown]
  - Weight increased [Unknown]
  - Increased appetite [Unknown]
  - Hypersensitivity [Unknown]
  - Nausea [Unknown]
  - Diarrhoea [Unknown]
  - Headache [Unknown]
  - Abdominal pain upper [Unknown]
  - Back pain [Unknown]
  - Lower respiratory tract congestion [Unknown]
  - Nasopharyngitis [Unknown]
  - Vomiting [Unknown]
